FAERS Safety Report 22400087 (Version 1)
Quarter: 2023Q2

REPORT INFORMATION
  Report Type: Spontaneous
  Country: KR (occurrence: KR)
  Receive Date: 20230602
  Receipt Date: 20230602
  Transmission Date: 20230722
  Serious: Yes (Hospitalization)
  Sender: FDA-Public Use
  Company Number: KR-ORGANON-O2305KOR003220

PATIENT
  Age: 71 Year
  Sex: Female
  Weight: 62 kg

DRUGS (11)
  1. COZAAR [Suspect]
     Active Substance: LOSARTAN POTASSIUM
     Indication: Essential hypertension
     Dosage: UNK, ONCE A DAY
     Dates: start: 20170314
  2. MELATONIN [Suspect]
     Active Substance: MELATONIN
     Indication: Insomnia
     Dosage: 2 MILLIGRAM, ONCE A DAY
     Dates: start: 20190902, end: 20191201
  3. CLOPIDOGREL BISULFATE [Concomitant]
     Active Substance: CLOPIDOGREL BISULFATE
     Indication: Cerebral infarction
     Dosage: UNK, ONCE A DAY
     Dates: start: 20180927
  4. EZETIMIBE\SIMVASTATIN [Concomitant]
     Active Substance: EZETIMIBE\SIMVASTATIN
     Indication: Hyperlipidaemia
     Dosage: UNK, ONCE A DAY
     Dates: start: 20170613
  5. TAMSULOSIN HYDROCHLORIDE [Concomitant]
     Active Substance: TAMSULOSIN HYDROCHLORIDE
     Indication: Prophylaxis
     Dosage: UNK, ONCE A DAY
     Dates: start: 20190228
  6. PIRENOXINE [Concomitant]
     Active Substance: PIRENOXINE
     Indication: Cataract
     Dosage: UNK, THRICE A DAY
     Dates: start: 20180612
  7. SODIUM HYALURONATE [Concomitant]
     Active Substance: HYALURONATE SODIUM
     Indication: Retinal disorder
     Dosage: UNK, EVERY 4 HOURS
     Dates: start: 20190326
  8. AMPICILLIN SODIUM\SULBACTAM SODIUM [Concomitant]
     Active Substance: AMPICILLIN SODIUM\SULBACTAM SODIUM
     Indication: Appendicitis
     Dosage: UNK, 4 TIMES DAILY
     Dates: start: 20191009, end: 20191012
  9. SODIUM CHLORIDE [Concomitant]
     Active Substance: SODIUM CHLORIDE
     Indication: Appendicitis
     Dosage: UNK, ONCE A DAY
     Dates: start: 20191010, end: 20191011
  10. ACECLOFENAC [Concomitant]
     Active Substance: ACECLOFENAC
     Indication: Prophylaxis
     Dosage: UNK, TWICE A DAY
     Dates: start: 20191012, end: 20191017
  11. FAMOTIDINE [Concomitant]
     Active Substance: FAMOTIDINE
     Indication: Prophylaxis
     Dosage: UNK, TWICE A DAY
     Dates: start: 20191011, end: 20191011

REACTIONS (1)
  - Appendicitis [Recovered/Resolved]

NARRATIVE: CASE EVENT DATE: 20191009
